FAERS Safety Report 6250366-5 (Version None)
Quarter: 2009Q2

REPORT INFORMATION
  Report Type: 
  Country: None (occurrence: None)
  Receive Date: 20090630
  Receipt Date: 20090625
  Transmission Date: 20091009
  Serious: Yes (Other)
  Sender: FDA-Public Use
  Company Number: PHHO2009NL03619

PATIENT
  Sex: Male

DRUGS (5)
  1. CYCLOSPORINE [Suspect]
     Indication: LIVER TRANSPLANT
     Dosage: UNK
     Route: 048
     Dates: start: 20070517, end: 20070525
  2. CYCLOSPORINE [Suspect]
     Dosage: UNK
     Route: 048
     Dates: start: 20070714, end: 20080222
  3. NO TREATMENT RECEIVED NOMED [Suspect]
     Indication: LIVER TRANSPLANT
     Dosage: UNK
     Route: 048
  4. TACROLIMUS [Suspect]
     Indication: LIVER TRANSPLANT
     Dosage: UNK
     Route: 048
     Dates: start: 20070601, end: 20070603
  5. TACROLIMUS [Suspect]
     Dosage: UNK
     Route: 048
     Dates: start: 20070612, end: 20070713

REACTIONS (1)
  - B-CELL LYMPHOMA [None]
